FAERS Safety Report 15201624 (Version 1)
Quarter: 2018Q3

REPORT INFORMATION
  Report Type: Spontaneous
  Country: FR (occurrence: FR)
  Receive Date: 20180726
  Receipt Date: 20180726
  Transmission Date: 20181010
  Serious: Yes (Hospitalization)
  Sender: FDA-Public Use
  Company Number: FR-SA-2018SA170387

PATIENT
  Age: 75 Year
  Sex: Female
  Weight: 135 kg

DRUGS (9)
  1. IBRANCE [Interacting]
     Active Substance: PALBOCICLIB
     Indication: PRODUCT USED FOR UNKNOWN INDICATION
     Dosage: 1 DF, CYCLIC (3 WEEKS ON 1 WEEK OFF)
     Route: 065
     Dates: start: 20171031, end: 20180419
  2. LERCAN [Concomitant]
     Active Substance: LERCANIDIPINE
     Dosage: 20 (UNSPECIFIED UNIT), UNK
     Route: 048
     Dates: start: 2010
  3. LAMALINE [CAFFEINE;PAPAVER SOMNIFERUM LATEX;PARACETAMOL] [Concomitant]
     Dosage: UNK
     Route: 054
     Dates: start: 20180418
  4. ATARAX [HYDROXYZINE] [Concomitant]
     Dosage: 25 (UNSPECIFIED UNIT), 2X/DAY
     Route: 048
     Dates: start: 2010
  5. AROMASINE [Concomitant]
     Active Substance: EXEMESTANE
     Dosage: 1 DF, DAILY
     Route: 048
     Dates: start: 20171115, end: 20180515
  6. LANTUS [Suspect]
     Active Substance: INSULIN GLARGINE
     Indication: PRODUCT USED FOR UNKNOWN INDICATION
     Dosage: UNK
     Route: 058
     Dates: start: 201801
  7. LOVENOX [Concomitant]
     Active Substance: ENOXAPARIN SODIUM
     Dosage: 0.6 (UNSPECIFIED UNIT), UNK
     Route: 058
     Dates: start: 201801
  8. CYMBALTA [Concomitant]
     Active Substance: DULOXETINE HYDROCHLORIDE
     Dosage: 60 (UNSPECIFIED UNIT), UNK
     Route: 048
     Dates: start: 2010
  9. INEXIUM [ESOMEPRAZOLE MAGNESIUM] [Concomitant]
     Dosage: 40 (UNSPECIFIED UNIT), 2X/DAY
     Route: 048
     Dates: start: 2010

REACTIONS (4)
  - Drug interaction [Unknown]
  - Radiation fibrosis [Not Recovered/Not Resolved]
  - Fibrosis [Unknown]
  - Urinary tract infection [Unknown]

NARRATIVE: CASE EVENT DATE: 20180315
